FAERS Safety Report 24709628 (Version 1)
Quarter: 2024Q4

REPORT INFORMATION
  Report Type: Spontaneous
  Country: FR (occurrence: FR)
  Receive Date: 20241209
  Receipt Date: 20241209
  Transmission Date: 20250114
  Serious: Yes (Other)
  Sender: AUROBINDO
  Company Number: FR-AFSSAPS-AVMP2024000305

PATIENT
  Age: 55 Year
  Sex: Female

DRUGS (4)
  1. OXYCODONE [Suspect]
     Active Substance: OXYCODONE
     Indication: Product used for unknown indication
     Dosage: 60 MILLIGRAM, ONCE A DAY
     Route: 048
     Dates: start: 202312, end: 20240114
  2. SKENAN [Suspect]
     Active Substance: MORPHINE SULFATE
     Indication: Product used for unknown indication
     Dosage: 60 MILLIGRAM, ONCE A DAY (30MG MORNING AND EVENING)
     Route: 048
     Dates: start: 20240114, end: 202404
  3. SKENAN [Suspect]
     Active Substance: MORPHINE SULFATE
     Dosage: 20 MILLIGRAM, ONCE A DAY (10 MG MORNING AND EVENING)
     Route: 048
     Dates: start: 202404, end: 20241022
  4. SKENAN [Suspect]
     Active Substance: MORPHINE SULFATE
     Dosage: 40 MILLIGRAM, ONCE A DAY (20MG MORNING AND EVENING)
     Route: 048
     Dates: start: 202410

REACTIONS (1)
  - Drug use disorder [Recovering/Resolving]

NARRATIVE: CASE EVENT DATE: 20240101
